FAERS Safety Report 7767834-7 (Version None)
Quarter: 2011Q3

REPORT INFORMATION
  Report Type: 
  Country: None (occurrence: None)
  Receive Date: 20110922
  Receipt Date: 20100802
  Transmission Date: 20111222
  Serious: Yes (Other)
  Sender: FDA-Public Use
  Company Number: US-ASTRAZENECA-2007UW08953

PATIENT
  Age: 46 Year
  Sex: Female
  Weight: 118.8 kg

DRUGS (7)
  1. LITHIUM CARBONATE [Concomitant]
     Dosage: 300 MG, 2 TABLETS PO Q AM, 3 TABLETS PO Q PM
     Dates: start: 19980527
  2. DEPAKOTE [Concomitant]
     Dosage: 1000-1500 MG
     Dates: start: 20030101, end: 20080101
  3. HALDOL [Concomitant]
     Dates: start: 19900101, end: 20080101
  4. BUSPAR [Concomitant]
     Route: 048
  5. HALDOL [Concomitant]
     Route: 048
     Dates: start: 19980527
  6. SEROQUEL [Suspect]
     Indication: SLEEP DISORDER
     Route: 048
     Dates: start: 19980527
  7. SEROQUEL [Suspect]
     Route: 048
     Dates: start: 20030101, end: 20080101

REACTIONS (6)
  - TYPE 2 DIABETES MELLITUS [None]
  - DIABETES MELLITUS [None]
  - HYPERLIPIDAEMIA [None]
  - HYPEROSMOLAR STATE [None]
  - BLOOD CHOLESTEROL INCREASED [None]
  - DEHYDRATION [None]
